FAERS Safety Report 4417456-0 (Version None)
Quarter: 2004Q2

REPORT INFORMATION
  Report Type: 
  Country: None (occurrence: None)
  Receive Date: 20040629
  Receipt Date: 20040310
  Transmission Date: 20050107
  Serious: Yes (Hospitalization)
  Sender: FDA-Public Use
  Company Number: USA040361580

PATIENT
  Sex: Female

DRUGS (4)
  1. ILETIN I [Suspect]
     Indication: DIABETES MELLITUS
  2. ... [Suspect]
  3. .. [Suspect]
  4. CLONIDINE HCL [Concomitant]

REACTIONS (5)
  - BLOOD GLUCOSE INCREASED [None]
  - DIARRHOEA [None]
  - EYE OPERATION [None]
  - HYPERTENSION [None]
  - VOMITING [None]
